FAERS Safety Report 8566412 (Version 8)
Quarter: 2013Q3

REPORT INFORMATION
  Report Type: Report from Study
  Country: AU (occurrence: AU)
  Receive Date: 20120517
  Receipt Date: 20130711
  Transmission Date: 20140515
  Serious: Yes (Death, Life-Threatening)
  Sender: FDA-Public Use
  Company Number: AU-SANOFI-AVENTIS-2012SA022228

PATIENT
  Age: 84 Year
  Sex: Male
  Weight: 73.8 kg

DRUGS (14)
  1. CABAZITAXEL [Suspect]
     Indication: PROSTATE CANCER METASTATIC
     Route: 041
     Dates: start: 20111129, end: 20111129
  2. CABAZITAXEL [Suspect]
     Indication: PROSTATE CANCER METASTATIC
     Route: 041
     Dates: start: 20120313, end: 20120313
  3. PREDNISONE [Suspect]
     Indication: PROSTATE CANCER METASTATIC
     Route: 048
     Dates: start: 20111129, end: 20120325
  4. ACETYLSALICYLIC ACID [Concomitant]
     Route: 048
     Dates: start: 2000
  5. BETALOC [Concomitant]
     Route: 048
     Dates: start: 2000
  6. LANOXIN [Concomitant]
     Route: 048
     Dates: start: 2000
  7. PANADEINE FORTE [Concomitant]
     Route: 048
     Dates: start: 201110
  8. ZOMETA [Concomitant]
     Route: 042
     Dates: start: 201107
  9. ZOLADEX [Concomitant]
     Route: 058
     Dates: start: 200906
  10. PEGFILGRASTIM [Concomitant]
     Route: 058
     Dates: start: 20111221, end: 20111221
  11. PEGFILGRASTIM [Concomitant]
     Route: 058
     Dates: start: 20120111, end: 20120111
  12. PEGFILGRASTIM [Concomitant]
     Route: 058
     Dates: start: 20120201, end: 20120201
  13. PEGFILGRASTIM [Concomitant]
     Route: 058
     Dates: start: 20120222, end: 20120222
  14. PEGFILGRASTIM [Concomitant]
     Route: 058
     Dates: start: 20120314, end: 20120314

REACTIONS (2)
  - Death [Fatal]
  - Pneumonia [Not Recovered/Not Resolved]
